FAERS Safety Report 23514635 (Version 6)
Quarter: 2024Q3

REPORT INFORMATION
  Report Type: Spontaneous
  Country: US (occurrence: US)
  Receive Date: 20240212
  Receipt Date: 20240924
  Transmission Date: 20241016
  Serious: Yes (Hospitalization, Other)
  Sender: PFIZER
  Company Number: US-PFIZER INC-202400035842

PATIENT
  Age: 75 Year
  Sex: Male
  Weight: 107.48 kg

DRUGS (2)
  1. TIKOSYN [Suspect]
     Active Substance: DOFETILIDE
     Indication: Heart rate abnormal
     Dosage: 500 MCG; 1 IN THE AM, 1 IN PM
     Route: 048
     Dates: start: 202310
  2. TIKOSYN [Suspect]
     Active Substance: DOFETILIDE
     Dosage: 500 MCG, PRESCRIBED TO TAKE 2 A DAY, HAS BEEN TAKING 1 A DAY, TRYING TO MAKE IT LAST
     Route: 048
     Dates: start: 202401, end: 20240712

REACTIONS (5)
  - COVID-19 [Not Recovered/Not Resolved]
  - Pancreas infection [Not Recovered/Not Resolved]
  - Splenectomy [Unknown]
  - Hypoacusis [Not Recovered/Not Resolved]
  - Intentional product use issue [Unknown]

NARRATIVE: CASE EVENT DATE: 20240101
